FAERS Safety Report 11329585 (Version 1)
Quarter: 2015Q3

REPORT INFORMATION
  Report Type: Spontaneous
  Country: US (occurrence: None)
  Receive Date: 20150730
  Receipt Date: 20150730
  Transmission Date: 20151125
  Serious: Yes (Life-Threatening)
  Sender: FDA-Public Use
  Company Number: None

PATIENT
  Age: 11 Year
  Sex: Male
  Weight: 45 kg

DRUGS (1)
  1. FOCALIN [Suspect]
     Active Substance: DEXMETHYLPHENIDATE HYDROCHLORIDE
     Indication: ATTENTION DEFICIT/HYPERACTIVITY DISORDER
     Route: 048

REACTIONS (8)
  - Seizure like phenomena [None]
  - Blindness [None]
  - Ventricular fibrillation [None]
  - Confusional state [None]
  - Ventricular tachycardia [None]
  - Ventricular extrasystoles [None]
  - Pulmonary oedema [None]
  - Loss of consciousness [None]

NARRATIVE: CASE EVENT DATE: 20150728
